FAERS Safety Report 12891237 (Version 1)
Quarter: 2016Q4

REPORT INFORMATION
  Report Type: Spontaneous
  Country: US (occurrence: US)
  Receive Date: 20161026
  Receipt Date: 20161026
  Transmission Date: 20170207
  Serious: No
  Sender: FDA-Public Use
  Company Number: None

PATIENT
  Age: 37 Year

DRUGS (1)
  1. MIRENA [Suspect]
     Active Substance: LEVONORGESTREL
     Dosage: ?          QUANTITY:THING?.I N N .\.;?

REACTIONS (2)
  - Device dislocation [None]
  - Post procedural haemorrhage [None]

NARRATIVE: CASE EVENT DATE: 20121101
